FAERS Safety Report 5929911-2 (Version None)
Quarter: 2008Q4

REPORT INFORMATION
  Report Type: 
  Country: None (occurrence: None)
  Receive Date: 20081024
  Receipt Date: 20081013
  Transmission Date: 20090506
  Serious: Yes (Hospitalization, Other)
  Sender: FDA-Public Use
  Company Number: US-PFIZER INC-2008072107

PATIENT
  Sex: Male
  Weight: 96.2 kg

DRUGS (18)
  1. CADUET [Suspect]
     Indication: BLOOD CHOLESTEROL INCREASED
     Dosage: TEXT:10/20MG (2 TABLETS DAILY)
     Route: 048
     Dates: start: 20080827, end: 20080901
  2. CADUET [Suspect]
     Indication: HYPERTENSION
  3. NEXIUM [Concomitant]
     Route: 048
  4. ACETYLSALICYLIC ACID SRT [Concomitant]
     Route: 048
  5. GENERAL NUTRIENTS/HERBAL NOS/MINERALS NOS [Concomitant]
     Route: 048
  6. NORCO [Concomitant]
     Dosage: TEXT:10/325 MG
     Route: 048
  7. VERAPAMIL [Concomitant]
     Indication: PALPITATIONS
     Route: 048
     Dates: start: 19780101
  8. VERAPAMIL [Concomitant]
     Indication: HYPERTENSION
  9. ZOCOR [Concomitant]
     Route: 048
     Dates: start: 20050101
  10. PROSCAR [Concomitant]
     Route: 048
  11. AMBIEN [Concomitant]
     Route: 048
  12. VICODIN [Concomitant]
     Dosage: TEXT:5/500
     Route: 048
  13. UROXATRAL [Concomitant]
     Route: 048
  14. XANAX [Concomitant]
  15. MOTRIN [Concomitant]
  16. ULTRAM ER [Concomitant]
     Route: 048
     Dates: start: 20080826
  17. KETOROLAC TROMETHAMINE [Concomitant]
     Dosage: TEXT:ONE DROPS 4 TIMES DAILY
  18. ATIVAN [Concomitant]
     Route: 048

REACTIONS (14)
  - ABDOMINAL PAIN [None]
  - ABDOMINAL PAIN UPPER [None]
  - ANXIETY [None]
  - BLOOD GLUCOSE INCREASED [None]
  - BURNING SENSATION [None]
  - CHEST PAIN [None]
  - DISCOMFORT [None]
  - EXTRASYSTOLES [None]
  - HYPERTENSION [None]
  - HYPOAESTHESIA [None]
  - LIVER FUNCTION TEST ABNORMAL [None]
  - OVERDOSE [None]
  - PALPITATIONS [None]
  - POLLAKIURIA [None]
